FAERS Safety Report 20124513 (Version 1)
Quarter: 2021Q4

REPORT INFORMATION
  Report Type: Spontaneous
  Country: US (occurrence: US)
  Receive Date: 20211129
  Receipt Date: 20211129
  Transmission Date: 20220303
  Serious: No
  Sender: FDA-Public Use
  Company Number: US-TEVA-2021-US-1979608

PATIENT
  Sex: Female

DRUGS (1)
  1. DISOPYRAMIDE [Suspect]
     Active Substance: DISOPYRAMIDE
     Indication: Hypertrophic cardiomyopathy
     Dosage: 200 MILLIGRAM DAILY; TAKE TWO CAPSULES DAILY BY MOUTH
     Route: 048
     Dates: start: 2021

REACTIONS (3)
  - Dysphagia [Unknown]
  - Product taste abnormal [Unknown]
  - Wrong technique in product usage process [Unknown]

NARRATIVE: CASE EVENT DATE: 20211101
